FAERS Safety Report 4767283-X (Version None)
Quarter: 2005Q3

REPORT INFORMATION
  Report Type: 
  Country: None (occurrence: None)
  Receive Date: 20050913
  Receipt Date: 20050908
  Transmission Date: 20060218
  Serious: Yes (Life-Threatening)
  Sender: FDA-Public Use
  Company Number: CA-GLAXOSMITHKLINE-A0573533A

PATIENT
  Age: 47 Year
  Sex: Male
  Weight: 111 kg

DRUGS (5)
  1. ZOFRAN [Suspect]
     Indication: DRUG USE FOR UNKNOWN INDICATION
     Dosage: 8MG UNKNOWN
     Route: 042
  2. PACLITAXEL [Suspect]
     Dosage: 350MG SEE DOSAGE TEXT
     Route: 065
     Dates: start: 20050801, end: 20050830
  3. DEXAMETHASONE [Concomitant]
     Dosage: 20MG UNKNOWN
     Route: 042
  4. PEPCID [Concomitant]
     Dosage: 20MG UNKNOWN
     Route: 042
  5. DIPHENHYDRAMINE HCL [Concomitant]
     Dosage: 50MG UNKNOWN
     Route: 042

REACTIONS (1)
  - NAUSEA [None]
